FAERS Safety Report 6640080-6 (Version None)
Quarter: 2010Q1

REPORT INFORMATION
  Report Type: 
  Country: None (occurrence: None)
  Receive Date: 20100318
  Receipt Date: 20100308
  Transmission Date: 20100710
  Serious: Yes (Hospitalization)
  Sender: FDA-Public Use
  Company Number: FR-ROCHE-251237

PATIENT
  Age: 16 Year
  Sex: Male
  Weight: 80 kg

DRUGS (4)
  1. ROACCUTANE [Suspect]
     Indication: ACNE
     Route: 048
     Dates: start: 20000516, end: 20000630
  2. ROACCUTANE [Suspect]
     Route: 048
     Dates: start: 20000315, end: 20000515
  3. ROACCUTANE [Suspect]
     Route: 048
     Dates: start: 20000701, end: 20000731
  4. ROACCUTANE [Suspect]
     Route: 048
     Dates: start: 20000801, end: 20001015

REACTIONS (5)
  - ANXIETY [None]
  - CONGESTIVE CARDIOMYOPATHY [None]
  - DEPRESSION [None]
  - IRRITABILITY [None]
  - NERVOUSNESS [None]
